FAERS Safety Report 7407001-X (Version None)
Quarter: 2011Q2

REPORT INFORMATION
  Report Type: 
  Country: None (occurrence: None)
  Receive Date: 20110411
  Receipt Date: 20110404
  Transmission Date: 20111010
  Serious: No
  Sender: FDA-Public Use
  Company Number: US-PFIZER INC-2011074836

PATIENT
  Sex: Male

DRUGS (15)
  1. FISH OIL [Concomitant]
     Dosage: UNK
  2. ARTHROTEC [Concomitant]
     Dosage: UNK
  3. NORVASC [Concomitant]
     Dosage: UNK
  4. SPIRIVA [Concomitant]
     Dosage: UNK
  5. FLAXSEED OIL [Concomitant]
  6. ALLOPURINOL [Concomitant]
     Dosage: UNK
  7. ALISKIREN [Suspect]
  8. TIMOLOL [Concomitant]
     Dosage: UNK
  9. ACETYLSALICYLIC ACID [Concomitant]
     Dosage: UNK
  10. LIPITOR [Suspect]
     Dosage: UNK
  11. NEXIUM [Concomitant]
     Dosage: UNK
  12. ATACAND [Concomitant]
     Dosage: UNK
  13. GLUCOSAMINE [Concomitant]
     Dosage: UNK
  14. XALATAN [Concomitant]
     Dosage: UNK
  15. VITAMIN D [Concomitant]
     Dosage: UNK

REACTIONS (1)
  - BLOOD HOMOCYSTEINE ABNORMAL [None]
